FAERS Safety Report 23510919 (Version 3)
Quarter: 2024Q4

REPORT INFORMATION
  Report Type: Spontaneous
  Country: FR (occurrence: FR)
  Receive Date: 20240212
  Receipt Date: 20241219
  Transmission Date: 20250114
  Serious: No
  Sender: ROCHE
  Company Number: FR-AMGEN-FRASP2024019015

PATIENT
  Age: 60 Year
  Sex: Male

DRUGS (2)
  1. BEVACIZUMAB [Suspect]
     Active Substance: BEVACIZUMAB
     Indication: Pituitary tumour
     Dosage: 10 MILLIGRAM/KILOGRAM, Q2WK
     Route: 065
     Dates: start: 202204
  2. BEVACIZUMAB [Suspect]
     Active Substance: BEVACIZUMAB
     Route: 065
     Dates: start: 202003

REACTIONS (3)
  - Off label use [Unknown]
  - Epistaxis [Unknown]
  - Hypertension [Unknown]
